FAERS Safety Report 5633364-1 (Version None)
Quarter: 2008Q1

REPORT INFORMATION
  Report Type: 
  Country: None (occurrence: None)
  Receive Date: 20080221
  Receipt Date: 20080209
  Transmission Date: 20080703
  Serious: Yes (Other)
  Sender: FDA-Public Use
  Company Number: US-PFIZER INC-2008012786

PATIENT
  Age: 16 Year
  Sex: Male

DRUGS (1)
  1. GEODON [Suspect]
     Dosage: DAILY DOSE:140MG-TEXT:60MG IN AM AND 80MG IN PM

REACTIONS (3)
  - INTENTIONAL SELF-INJURY [None]
  - LETHARGY [None]
  - TARDIVE DYSKINESIA [None]
